FAERS Safety Report 8558169 (Version 4)
Quarter: 2012Q4

REPORT INFORMATION
  Report Type: 
  Country: GB (occurrence: GB)
  Receive Date: 20120511
  Receipt Date: 20121127
  Transmission Date: 20130627
  Serious: Yes (Hospitalization, Other)
  Sender: FDA-Public Use
  Company Number: GB-ASTRAZENECA-2012SE28807

PATIENT
  Age: 53 Year
  Sex: Male

DRUGS (7)
  1. SEROQUEL IR [Suspect]
     Indication: BIPOLAR DISORDER
     Route: 048
     Dates: start: 2010, end: 2012
  2. SEROQUEL IR [Suspect]
     Indication: BIPOLAR DISORDER
     Route: 048
     Dates: start: 2012
  3. SEROQUEL IR [Suspect]
     Indication: BIPOLAR DISORDER
     Route: 048
  4. SEROQUEL IR [Suspect]
     Indication: BIPOLAR DISORDER
     Route: 048
  5. LITHIUM [Concomitant]
  6. DIAZEPAM [Concomitant]
  7. LAMOTRIGINE [Concomitant]

REACTIONS (13)
  - Basal cell carcinoma [Recovered/Resolved]
  - Condition aggravated [Unknown]
  - Hallucination [Unknown]
  - Disinhibition [Unknown]
  - Paranoia [Unknown]
  - Agitation [Unknown]
  - Malaise [Unknown]
  - Contusion [Unknown]
  - Disturbance in attention [Unknown]
  - Injury [Unknown]
  - Vomiting [Unknown]
  - Drug withdrawal syndrome [Unknown]
  - Irritability [Unknown]
